FAERS Safety Report 10895968 (Version 3)
Quarter: 2015Q3

REPORT INFORMATION
  Report Type: Report from Study
  Country: US (occurrence: US)
  Receive Date: 20150308
  Receipt Date: 20150824
  Transmission Date: 20151125
  Serious: Yes (Death, Other)
  Sender: FDA-Public Use
  Company Number: US-GILEAD-2015-0141020

PATIENT
  Age: 74 Year
  Sex: Female

DRUGS (12)
  1. SPIRIVA [Concomitant]
     Active Substance: TIOTROPIUM BROMIDE MONOHYDRATE
  2. OMEPRAZOLE. [Concomitant]
     Active Substance: OMEPRAZOLE
  3. ATROVENT [Concomitant]
     Active Substance: IPRATROPIUM BROMIDE
  4. PROLIA [Concomitant]
     Active Substance: DENOSUMAB
  5. AMBRISENTAN [Suspect]
     Active Substance: AMBRISENTAN
     Indication: PULMONARY HYPERTENSION
     Dosage: 5 MG, QD
     Route: 065
     Dates: start: 20140918, end: 20150301
  6. LEVOTHROID [Concomitant]
     Active Substance: LEVOTHYROXINE SODIUM
  7. AMBRISENTAN [Suspect]
     Active Substance: AMBRISENTAN
     Indication: IDIOPATHIC PULMONARY FIBROSIS
  8. GABAPENTIN. [Concomitant]
     Active Substance: GABAPENTIN
  9. BUTALBITAL W/CAFFEINE/PARACETAMOL [Concomitant]
     Active Substance: CAFFEINE
  10. FUROSEMIDE. [Concomitant]
     Active Substance: FUROSEMIDE
  11. HYDROCHLOROTHIAZIDE. [Concomitant]
     Active Substance: HYDROCHLOROTHIAZIDE
  12. LIPITOR [Concomitant]
     Active Substance: ATORVASTATIN CALCIUM

REACTIONS (1)
  - Idiopathic pulmonary fibrosis [Fatal]
